FAERS Safety Report 6942935-1 (Version None)
Quarter: 2010Q3

REPORT INFORMATION
  Report Type: 
  Country: None (occurrence: None)
  Receive Date: 20100826
  Receipt Date: 20100816
  Transmission Date: 20110219
  Serious: Yes (Other)
  Sender: FDA-Public Use
  Company Number: PHFR2010GB02416

PATIENT
  Age: 67 Year
  Sex: Female

DRUGS (14)
  1. ZOLEDRONIC [Suspect]
     Indication: OSTEOPOROSIS
     Dosage: 5MG/DAY
     Route: 042
     Dates: start: 20100601, end: 20100601
  2. ILOPROST [Interacting]
     Route: 042
  3. ADALAT [Concomitant]
  4. CACIT VITAMINE D3 [Concomitant]
     Route: 065
  5. CLOPIDOGREL [Concomitant]
  6. ACETAMINOPHEN AND CODEINE PHOSPHATE [Concomitant]
     Route: 065
  7. EZETIMIBE [Concomitant]
     Route: 065
  8. FENTANYL CITRATE [Concomitant]
     Route: 065
  9. LACTULOSE [Concomitant]
     Route: 065
  10. LISINOPRIL [Concomitant]
     Route: 065
  11. PREDNISOLONE [Concomitant]
     Route: 065
  12. PREGABALIN [Concomitant]
     Route: 065
  13. QUININE SULFATE [Concomitant]
  14. RANITIDINE [Concomitant]
     Route: 065

REACTIONS (4)
  - DRUG INTERACTION [None]
  - MALAISE [None]
  - PAIN [None]
  - TREMOR [None]
